FAERS Safety Report 16877706 (Version 18)
Quarter: 2021Q2

REPORT INFORMATION
  Report Type: Other
  Country: DE (occurrence: DE)
  Receive Date: 20191002
  Receipt Date: 20210511
  Transmission Date: 20210716
  Serious: Yes (Hospitalization, Other)
  Sender: FDA-Public Use
  Company Number: DE-ROCHE-2095674

PATIENT
  Age: 59 Year
  Sex: Female

DRUGS (13)
  1. OCREVUS [Suspect]
     Active Substance: OCRELIZUMAB
     Indication: PRIMARY PROGRESSIVE MULTIPLE SCLEROSIS
     Dosage: NEXT DOSE: 600 MG ON AN UNKNOWN DATE, 4TH MAINTENANCE DOSE 08/MAY/2020: 600 MG
     Route: 042
     Dates: start: 20180314
  2. FAMPYRA [Concomitant]
     Active Substance: DALFAMPRIDINE
     Dosage: 1?0?1
  3. L?THYROXIN [Concomitant]
     Active Substance: LEVOTHYROXINE SODIUM
  4. SIRDALUD [Concomitant]
     Active Substance: TIZANIDINE
  5. OCREVUS [Suspect]
     Active Substance: OCRELIZUMAB
     Dosage: NEXT DOSE: 600 MG ON AN UNKNOWN DATE, 4TH MAINTENANCE DOSE 08/MAY/2020: 600 MG?NEXT INFUSION WAS REC
     Route: 042
  6. OCREVUS [Suspect]
     Active Substance: OCRELIZUMAB
     Dosage: 4TH MAINTENANCE DOSE
     Route: 042
     Dates: start: 20200508
  7. METHYLPREDNISOLON [Concomitant]
     Active Substance: METHYLPREDNISOLONE
     Indication: PREMEDICATION
  8. SIRDALUD [Concomitant]
     Active Substance: TIZANIDINE
  9. OCREVUS [Suspect]
     Active Substance: OCRELIZUMAB
     Route: 042
  10. PFIZER?BIONTECH COVID?19 VACCINE [Suspect]
     Active Substance: TOZINAMERAN
     Indication: PRODUCT USED FOR UNKNOWN INDICATION
     Route: 065
     Dates: start: 20210428
  11. CITALOPRAM [Concomitant]
     Active Substance: CITALOPRAM HYDROBROMIDE
  12. BACLOFEN. [Suspect]
     Active Substance: BACLOFEN
     Indication: MUSCLE SPASTICITY
     Route: 065
     Dates: start: 201904, end: 2019
  13. PARACETAMOL [Concomitant]
     Active Substance: ACETAMINOPHEN
     Indication: PREMEDICATION

REACTIONS (29)
  - Peroneal nerve palsy [Not Recovered/Not Resolved]
  - Panic attack [Recovering/Resolving]
  - Nasopharyngitis [Recovering/Resolving]
  - Sleep disorder [Recovering/Resolving]
  - Cervical vertebral fracture [Recovered/Resolved]
  - Pain in extremity [Recovered/Resolved]
  - Injection site haematoma [Recovered/Resolved]
  - Anxiety [Recovering/Resolving]
  - Trigeminal neuralgia [Recovered/Resolved]
  - Balance disorder [Not Recovered/Not Resolved]
  - Feeling cold [Not Recovered/Not Resolved]
  - Blood blister [Recovered/Resolved]
  - Spinal disorder [Unknown]
  - Dental implantation [Recovered/Resolved]
  - Hypoaesthesia [Not Recovered/Not Resolved]
  - Ligament injury [Not Recovered/Not Resolved]
  - Pain [Recovered/Resolved]
  - Fatigue [Recovered/Resolved]
  - Fall [Unknown]
  - Bone cyst [Unknown]
  - Gait disturbance [Not Recovered/Not Resolved]
  - Intervertebral disc protrusion [Not Recovered/Not Resolved]
  - Spondylolisthesis [Not Recovered/Not Resolved]
  - Urticaria [Recovered/Resolved]
  - Haemorrhage [Recovered/Resolved]
  - Rhinorrhoea [Recovered/Resolved]
  - Muscle spasticity [Recovered/Resolved]
  - Depression [Recovering/Resolving]
  - Tooth infection [Recovered/Resolved]

NARRATIVE: CASE EVENT DATE: 20180315
